FAERS Safety Report 5297087-3 (Version None)
Quarter: 2007Q1

REPORT INFORMATION
  Report Type: 
  Country: None (occurrence: None)
  Receive Date: 20070201
  Receipt Date: 20061003
  Transmission Date: 20070707
  Serious: No
  Sender: FDA-Public Use
  Company Number: 2006PV022423

PATIENT
  Age: 33 Year
  Sex: Female

DRUGS (1)
  1. BYETTA [Suspect]
     Indication: INSULIN RESISTANCE
     Dosage: 10 MCG;BID;SC
     Route: 058

REACTIONS (2)
  - THERAPEUTIC RESPONSE UNEXPECTED [None]
  - WEIGHT DECREASED [None]
